FAERS Safety Report 8070828-8 (Version None)
Quarter: 2012Q1

REPORT INFORMATION
  Report Type: 
  Country: None (occurrence: None)
  Receive Date: 20120125
  Receipt Date: 20120120
  Transmission Date: 20120608
  Serious: Yes (Other)
  Sender: FDA-Public Use
  Company Number: US-GLAXOSMITHKLINE-A0962793A

PATIENT
  Sex: Male

DRUGS (1)
  1. PAXIL [Suspect]
     Indication: PRODUCT USED FOR UNKNOWN INDICATION
     Dosage: 40MG PER DAY
     Route: 048
     Dates: start: 20000101, end: 20110601

REACTIONS (13)
  - PAIN [None]
  - DEPRESSION [None]
  - SUICIDAL IDEATION [None]
  - HEADACHE [None]
  - WITHDRAWAL SYNDROME [None]
  - AGORAPHOBIA [None]
  - HYPOAESTHESIA [None]
  - INSOMNIA [None]
  - ANXIETY [None]
  - DYSPNOEA [None]
  - THINKING ABNORMAL [None]
  - SLEEP TERROR [None]
  - HEART RATE INCREASED [None]
